FAERS Safety Report 15191373 (Version 1)
Quarter: 2018Q3

REPORT INFORMATION
  Report Type: Spontaneous
  Country: US (occurrence: US)
  Receive Date: 20180724
  Receipt Date: 20180724
  Transmission Date: 20181010
  Serious: No
  Sender: FDA-Public Use
  Company Number: PHEH2018US029180

PATIENT
  Sex: Female

DRUGS (4)
  1. ALCLOMETASONE [Suspect]
     Active Substance: ALCLOMETASONE
     Indication: PRURITUS
     Dosage: UNK
     Route: 065
  2. ALCLOMETASONE [Suspect]
     Active Substance: ALCLOMETASONE
     Indication: ERYTHEMA
  3. BETAMETHASONE. [Suspect]
     Active Substance: BETAMETHASONE
     Indication: ERYTHEMA
     Dosage: UNK
     Route: 065
  4. BETAMETHASONE. [Suspect]
     Active Substance: BETAMETHASONE
     Indication: PRURITUS

REACTIONS (3)
  - Erythema [Unknown]
  - Pruritus [Unknown]
  - Drug ineffective [Unknown]
